FAERS Safety Report 4406258-7 (Version None)
Quarter: 2004Q3

REPORT INFORMATION
  Report Type: 
  Country: None (occurrence: None)
  Receive Date: 20040723
  Receipt Date: 20030527
  Transmission Date: 20050211
  Serious: No
  Sender: FDA-Public Use
  Company Number: US-GLAXOSMITHKLINE-A0409516A

PATIENT
  Age: 78 Year
  Sex: Female

DRUGS (8)
  1. AVANDIA [Suspect]
     Dosage: 4MG TWICE PER DAY
     Route: 048
     Dates: start: 20010701
  2. CALCIUM [Concomitant]
  3. IRON SUPPLEMENT [Concomitant]
  4. ASPIRIN [Concomitant]
  5. VITAMIN B COMPLEX CAP [Concomitant]
  6. VASOTEC [Concomitant]
  7. GLYBURIDE [Concomitant]
  8. WATER PILL [Concomitant]

REACTIONS (3)
  - OEDEMA PERIPHERAL [None]
  - RASH PRURITIC [None]
  - SKIN DESQUAMATION [None]
